FAERS Safety Report 23957245 (Version 3)
Quarter: 2025Q2

REPORT INFORMATION
  Report Type: Report from Study
  Country: US (occurrence: US)
  Receive Date: 20240610
  Receipt Date: 20250401
  Transmission Date: 20250717
  Serious: Yes (Hospitalization, Other)
  Sender: SANOFI AVENTIS
  Company Number: US-SA-2024SA144091

PATIENT
  Age: 56 Year
  Sex: Male
  Weight: 82 kg

DRUGS (25)
  1. CABAZITAXEL [Suspect]
     Active Substance: CABAZITAXEL
     Indication: Adenocarcinoma
     Dosage: 15 MG/M2, Q3W
     Route: 042
     Dates: start: 20240328, end: 20240328
  2. CABAZITAXEL [Suspect]
     Active Substance: CABAZITAXEL
     Dosage: 20 MG/M2, Q3W
     Route: 042
     Dates: start: 20240417, end: 20240417
  3. CABAZITAXEL [Suspect]
     Active Substance: CABAZITAXEL
     Dosage: 15 MG/M2, Q3W
     Route: 042
     Dates: start: 20240910, end: 20240910
  4. CABAZITAXEL [Suspect]
     Active Substance: CABAZITAXEL
     Dosage: 15 MG/M2, Q3W
     Route: 042
     Dates: start: 20241002, end: 20241002
  5. CARBOPLATIN [Suspect]
     Active Substance: CARBOPLATIN
     Indication: Adenocarcinoma
     Dosage: 10 MG/ML, Q3W
     Route: 042
     Dates: start: 20240328, end: 20240328
  6. CARBOPLATIN [Suspect]
     Active Substance: CARBOPLATIN
     Dosage: 10 MG/ML, Q3W
     Route: 042
     Dates: start: 20240417, end: 20240417
  7. CARBOPLATIN [Suspect]
     Active Substance: CARBOPLATIN
     Dosage: UNK, Q3W
     Route: 042
     Dates: start: 20240910, end: 20240910
  8. CARBOPLATIN [Suspect]
     Active Substance: CARBOPLATIN
     Dosage: AUC 4 MG/ML/MIN, EVERY 3 WEEKS, (TOTAL ADMINISTERED DOSE WAS 344 MG)
     Route: 042
     Dates: start: 20241002, end: 20241002
  9. CHOLECALCIFEROL [Concomitant]
     Active Substance: CHOLECALCIFEROL
     Dates: start: 20201217
  10. DOCUSATE [Concomitant]
     Active Substance: DOCUSATE
  11. GABAPENTIN [Concomitant]
     Active Substance: GABAPENTIN
     Dates: start: 20221106
  12. HYDROCORTISONE [Concomitant]
     Active Substance: HYDROCORTISONE
  13. LACTULOSE [Concomitant]
     Active Substance: LACTULOSE
  14. MAGNESIUM OXIDE [Concomitant]
     Active Substance: MAGNESIUM OXIDE
  15. VITAMINS [Concomitant]
     Active Substance: VITAMINS
     Dates: start: 20231001
  16. ONDANSETRON [Concomitant]
     Active Substance: ONDANSETRON
     Dates: start: 20230306
  17. OXYCODONE [Concomitant]
     Active Substance: OXYCODONE
     Dates: start: 20230505
  18. PROCHLORPERAZINE [Concomitant]
     Active Substance: PROCHLORPERAZINE
  19. IBUPROFEN [Concomitant]
     Active Substance: IBUPROFEN
     Dates: start: 20230505
  20. APIXABAN [Concomitant]
     Active Substance: APIXABAN
     Dates: start: 20240314
  21. OMEPRAZOLE [Concomitant]
     Active Substance: OMEPRAZOLE
     Dates: start: 20240408
  22. VITAMIN B COMPLEX [Concomitant]
     Active Substance: CYANOCOBALAMIN\DEXPANTHENOL\NIACINAMIDE\PYRIDOXINE HYDROCHLORIDE\RIBOFLAVIN 5^-PHOSPHATE SODIUM\THIA
     Dates: start: 20200321
  23. METHYLPREDNISOLONE SODIUM SUCCINATE [Concomitant]
     Active Substance: METHYLPREDNISOLONE SODIUM SUCCINATE
     Dates: start: 20240419, end: 20240423
  24. PREDNISONE [Concomitant]
     Active Substance: PREDNISONE
     Dates: start: 20240423
  25. ENOXAPARIN [Concomitant]
     Active Substance: ENOXAPARIN
     Dates: start: 20240423, end: 20240427

REACTIONS (4)
  - Systemic inflammatory response syndrome [Recovered/Resolved]
  - Pulmonary embolism [Recovered/Resolved]
  - Hypertransaminasaemia [Recovered/Resolved]
  - Sepsis [Recovered/Resolved]

NARRATIVE: CASE EVENT DATE: 20240418
